FAERS Safety Report 13539029 (Version 1)
Quarter: 2017Q2

REPORT INFORMATION
  Report Type: Report from Study
  Country: MX (occurrence: MX)
  Receive Date: 20170512
  Receipt Date: 20170512
  Transmission Date: 20170830
  Serious: Yes (Other)
  Sender: FDA-Public Use
  Company Number: PHHY2017MX069459

PATIENT
  Sex: Female

DRUGS (3)
  1. RASILEZ [Suspect]
     Active Substance: ALISKIREN
     Indication: HYPERTENSION
     Dosage: 1 DF, QD,
     Route: 065
  2. RASILEZ [Suspect]
     Active Substance: ALISKIREN
     Dosage: 1 DF, UNK, (EVERY 3 DAY)
     Route: 065
  3. AMLODIPINE [Concomitant]
     Active Substance: AMLODIPINE BESYLATE
     Indication: PRODUCT USED FOR UNKNOWN INDICATION
     Route: 065

REACTIONS (3)
  - Malaise [Unknown]
  - Blood pressure increased [Unknown]
  - Blood pressure systolic increased [Unknown]
